FAERS Safety Report 12522799 (Version 1)
Quarter: 2016Q3

REPORT INFORMATION
  Report Type: Spontaneous
  Country: CA (occurrence: CA)
  Receive Date: 20160701
  Receipt Date: 20160701
  Transmission Date: 20161109
  Serious: Yes (Hospitalization)
  Sender: FDA-Public Use
  Company Number: CA-ABBVIE-16P-028-1663377-00

PATIENT
  Age: 65 Year
  Sex: Male

DRUGS (10)
  1. RIVAROXABAN [Interacting]
     Active Substance: RIVAROXABAN
     Indication: ANTICOAGULANT THERAPY
     Route: 048
  2. PREDNISONE. [Concomitant]
     Active Substance: PREDNISONE
     Indication: PRODUCT USED FOR UNKNOWN INDICATION
  3. TIOTROPIUM [Concomitant]
     Active Substance: TIOTROPIUM
     Indication: PRODUCT USED FOR UNKNOWN INDICATION
     Dosage: 18 UG/D
  4. HEPARIN [Concomitant]
     Active Substance: HEPARIN SODIUM
     Indication: THROMBOSIS PROPHYLAXIS
  5. PANTOPRAZOLE [Concomitant]
     Active Substance: PANTOPRAZOLE SODIUM
     Indication: PRODUCT USED FOR UNKNOWN INDICATION
  6. CLARITHROMYCIN. [Suspect]
     Active Substance: CLARITHROMYCIN
     Indication: OROPHARYNGEAL PAIN
     Route: 048
  7. CLARITHROMYCIN. [Interacting]
     Active Substance: CLARITHROMYCIN
     Indication: COUGH
  8. RITUXIMAB [Concomitant]
     Active Substance: RITUXIMAB
     Indication: PRODUCT USED FOR UNKNOWN INDICATION
     Route: 042
  9. COTRIMOXAZOLE [Concomitant]
     Active Substance: SULFAMETHOXAZOLE\TRIMETHOPRIM
     Indication: ANTIFUNGAL PROPHYLAXIS
     Dosage: DOUBLE STRENGTH
  10. CLARITHROMYCIN. [Interacting]
     Active Substance: CLARITHROMYCIN
     Indication: DYSPNOEA

REACTIONS (3)
  - Subarachnoid haemorrhage [Recovering/Resolving]
  - Haemorrhage intracranial [Recovering/Resolving]
  - Drug interaction [Recovering/Resolving]
